APPROVED DRUG PRODUCT: ENTECAVIR
Active Ingredient: ENTECAVIR
Strength: 1MG
Dosage Form/Route: TABLET;ORAL
Application: A205824 | Product #002
Applicant: ACCORD HEALTHCARE INC
Approved: Aug 25, 2017 | RLD: No | RS: No | Type: DISCN